FAERS Safety Report 22994276 (Version 4)
Quarter: 2023Q4

REPORT INFORMATION
  Report Type: Report from Study
  Country: US (occurrence: US)
  Receive Date: 20230927
  Receipt Date: 20231023
  Transmission Date: 20240110
  Serious: Yes (Hospitalization, Other)
  Sender: FDA-Public Use
  Company Number: US-ABBVIE-5410876

PATIENT
  Age: 67 Year
  Sex: Male
  Weight: 149.68 kg

DRUGS (3)
  1. RINVOQ [Suspect]
     Active Substance: UPADACITINIB
     Indication: Rheumatoid arthritis
     Dosage: LAST ADMIN DATE 2022?FORM STRENGTH 15 MILLIGRAMS
     Route: 048
     Dates: start: 20220603
  2. RINVOQ [Suspect]
     Active Substance: UPADACITINIB
     Indication: Rheumatoid arthritis
     Dosage: FORM STRENGTH 15 MILLIGRAMS
     Route: 048
     Dates: start: 20221226, end: 202307
  3. RINVOQ [Suspect]
     Active Substance: UPADACITINIB
     Indication: Rheumatoid arthritis
     Dosage: FORM STRENGTH 15 MILLIGRAMS
     Route: 048
     Dates: start: 202308

REACTIONS (8)
  - Lung neoplasm malignant [Recovering/Resolving]
  - Fatigue [Not Recovered/Not Resolved]
  - Dyspnoea [Recovering/Resolving]
  - Atrial fibrillation [Recovering/Resolving]
  - COVID-19 [Recovered/Resolved]
  - Heart rate increased [Recovering/Resolving]
  - Hypersomnia [Recovering/Resolving]
  - Pneumoconiosis [Recovering/Resolving]

NARRATIVE: CASE EVENT DATE: 20230501
